FAERS Safety Report 8778074 (Version 1)
Quarter: 2012Q4

REPORT INFORMATION
  Report Type: 
  Country: US (occurrence: US)
  Receive Date: 20120911
  Receipt Date: 20120911
  Transmission Date: 20130627
  Serious: Yes (Hospitalization)
  Sender: FDA-Public Use
  Company Number: US-MYLANLABS-2012S1018368

PATIENT
  Age: 59 Year
  Sex: Male

DRUGS (2)
  1. ALPRAZOLAM [Suspect]
     Indication: OVERDOSE
     Route: 065
  2. FENTANYL [Suspect]
     Indication: OVERDOSE
     Route: 065

REACTIONS (8)
  - Overdose [Recovering/Resolving]
  - Hypoxia [Recovering/Resolving]
  - Leukoencephalopathy [Recovering/Resolving]
  - Unresponsive to stimuli [Recovered/Resolved]
  - Myocardial infarction [Recovering/Resolving]
  - Pneumonia aspiration [Recovering/Resolving]
  - Renal failure acute [Recovering/Resolving]
  - Rhabdomyolysis [Recovering/Resolving]
